FAERS Safety Report 4564911-9 (Version None)
Quarter: 2005Q1

REPORT INFORMATION
  Report Type: 
  Country: None (occurrence: None)
  Receive Date: 20050126
  Receipt Date: 20050113
  Transmission Date: 20050727
  Serious: Yes (Hospitalization)
  Sender: FDA-Public Use
  Company Number: 2004117610

PATIENT
  Age: 47 Year
  Sex: Female

DRUGS (6)
  1. ARTHROTEC [Suspect]
     Indication: FIBROMYALGIA
     Dosage: 100 MG (50 MG, 2 IN 1 D), ORAL
     Route: 048
     Dates: start: 20040823, end: 20041123
  2. TOCOPHEROL (TOCOPHEROL) [Concomitant]
  3. KELP (KELP) [Concomitant]
  4. GLUCOSAMINE (GLUCOSAMINE) [Concomitant]
  5. CHONDROITIN SULFATE (CHONDROITIN SULFATE) [Concomitant]
  6. METHYLSULFONYLMETHANE (METHYLSULFONYLMETHANE) [Concomitant]

REACTIONS (8)
  - ASTHENIA [None]
  - BACK PAIN [None]
  - DRUG INEFFECTIVE [None]
  - FIBROMYALGIA [None]
  - MUSCLE SPASMS [None]
  - MYALGIA [None]
  - OEDEMA [None]
  - UTERINE HAEMORRHAGE [None]
